FAERS Safety Report 16340592 (Version 1)
Quarter: 2019Q2

REPORT INFORMATION
  Report Type: Spontaneous
  Country: RU (occurrence: RU)
  Receive Date: 20190522
  Receipt Date: 20190522
  Transmission Date: 20190711
  Serious: Yes (Other)
  Sender: FDA-Public Use
  Company Number: RU-SA-2019SA133602

PATIENT
  Age: 68 Year
  Sex: Female
  Weight: 85 kg

DRUGS (10)
  1. EDARBI [Concomitant]
     Active Substance: AZILSARTAN KAMEDOXOMIL
     Indication: HYPERTENSION
     Dosage: 1 TABLET MORNIG
     Route: 048
  2. LORATADINE. [Concomitant]
     Active Substance: LORATADINE
     Indication: SWELLING FACE
     Dosage: 2 DF, BID
     Route: 048
     Dates: start: 20190507
  3. SUPRASTIN [Concomitant]
     Active Substance: CHLOROPYRAMINE HYDROCHLORIDE
     Indication: SWELLING OF EYELID
  4. LORATADINE. [Concomitant]
     Active Substance: LORATADINE
     Indication: SWELLING OF EYELID
  5. SUPRASTIN [Concomitant]
     Active Substance: CHLOROPYRAMINE HYDROCHLORIDE
     Indication: SWELLING FACE
     Dosage: UNK, QD
     Route: 030
     Dates: start: 20190507, end: 20190507
  6. L-THYROXINE [LEVOTHYROXINE SODIUM] [Concomitant]
     Active Substance: LEVOTHYROXINE SODIUM
     Indication: PARATHYROIDECTOMY
     Dosage: UNK, QD
     Route: 048
     Dates: start: 1985
  7. PREDNISOLONE. [Concomitant]
     Active Substance: PREDNISOLONE
     Indication: SWELLING OF EYELID
  8. PREDNISOLONE. [Concomitant]
     Active Substance: PREDNISOLONE
     Indication: SWELLING FACE
     Dosage: UNK
     Route: 030
     Dates: start: 20190507, end: 20190507
  9. TOUJEO [Suspect]
     Active Substance: INSULIN GLARGINE
     Indication: TYPE 2 DIABETES MELLITUS
     Dosage: 28 U, QD
     Route: 058
  10. HUMALOG [Concomitant]
     Active Substance: INSULIN LISPRO
     Indication: TYPE 2 DIABETES MELLITUS
     Dosage: 8 IU, TID
     Route: 058

REACTIONS (6)
  - Swelling of eyelid [Recovered/Resolved]
  - Hyperglycaemia [Not Recovered/Not Resolved]
  - Intentional dose omission [Unknown]
  - Asphyxia [Recovered/Resolved]
  - Swelling face [Recovered/Resolved]
  - Arrhythmia [Unknown]

NARRATIVE: CASE EVENT DATE: 20190506
